FAERS Safety Report 21164431 (Version 1)
Quarter: 2022Q3

REPORT INFORMATION
  Report Type: Report from Study
  Country: US (occurrence: US)
  Receive Date: 20220803
  Receipt Date: 20220803
  Transmission Date: 20221027
  Serious: Yes (Other)
  Sender: FDA-Public Use
  Company Number: US-ABBVIE-22K-163-4485944-00

PATIENT
  Sex: Female

DRUGS (6)
  1. SKYRIZI [Suspect]
     Active Substance: RISANKIZUMAB-RZAA
     Indication: Psoriasis
     Route: 058
  2. FLUAD QUAD [Concomitant]
     Indication: Product used for unknown indication
     Dates: start: 2021, end: 2022
  3. PFIZER-BIONTECH COVID-19 VACCINE [Concomitant]
     Active Substance: TOZINAMERAN
     Indication: COVID-19 immunisation
     Route: 030
  4. CALCIUM VITAMIN D3 [Concomitant]
     Indication: Product used for unknown indication
     Dosage: 10-TABLETS
     Route: 048
  5. D-MANNOSE [Concomitant]
     Indication: Product used for unknown indication
     Dosage: 99% POWDER
     Route: 065
  6. METOPROLOL TARTRATE [Concomitant]
     Active Substance: METOPROLOL TARTRATE
     Indication: Product used for unknown indication
     Route: 048

REACTIONS (1)
  - Intentional self-injury [Unknown]
